FAERS Safety Report 16992499 (Version 1)
Quarter: 2019Q4

REPORT INFORMATION
  Report Type: Spontaneous
  Country: US (occurrence: US)
  Receive Date: 20191105
  Receipt Date: 20191105
  Transmission Date: 20200122
  Serious: No
  Sender: FDA-Public Use
  Company Number: US-ALLERGAN-1907692US

PATIENT
  Sex: Female

DRUGS (1)
  1. RAPAFLO [Suspect]
     Active Substance: SILODOSIN
     Indication: SURGERY
     Dosage: 8 MG, UNK
     Dates: start: 2012

REACTIONS (1)
  - Off label use [Unknown]
